FAERS Safety Report 22400190 (Version 1)
Quarter: 2023Q2

REPORT INFORMATION
  Report Type: Spontaneous
  Country: US (occurrence: None)
  Receive Date: 20230601
  Receipt Date: 20230601
  Transmission Date: 20230722
  Serious: Yes (Other)
  Sender: FDA-Public Use
  Company Number: None

PATIENT
  Age: 38 Year
  Sex: Female
  Weight: 72 kg

DRUGS (2)
  1. KOSAS REVEALER SKIN-IMPROVING FOUNDATION BROAD SPECTRUM SPF-25 - MEDIU [Suspect]
     Active Substance: ZINC OXIDE
     Indication: Product used for unknown indication
     Dates: start: 20230401, end: 20230531
  2. NEPHEDIPINE [Concomitant]

REACTIONS (4)
  - Eye swelling [None]
  - Swelling face [None]
  - Erythema [None]
  - Pruritus [None]

NARRATIVE: CASE EVENT DATE: 20230531
